FAERS Safety Report 10733194 (Version 1)
Quarter: 2015Q1

REPORT INFORMATION
  Report Type: Spontaneous
  Country: FR (occurrence: None)
  Receive Date: 20150120
  Receipt Date: 20150120
  Transmission Date: 20150721
  Serious: No
  Sender: FDA-Public Use
  Company Number: FR2015GSK004497

PATIENT
  Age: 63 Year
  Sex: Male

DRUGS (6)
  1. KIVEXA [Suspect]
     Active Substance: ABACAVIR SULFATE\LAMIVUDINE
     Indication: HIV INFECTION
     Route: 048
     Dates: start: 2009
  2. KARDEGIC [Concomitant]
     Active Substance: ASPIRIN LYSINE
  3. CRESTOR [Concomitant]
     Active Substance: ROSUVASTATIN CALCIUM
  4. LYRICA [Concomitant]
     Active Substance: PREGABALIN
  5. FORTZAAR (HYDROCHLOROTHIAZIDE + LOSARTAN POTASSIUM) [Concomitant]
  6. EDURANT [Suspect]
     Active Substance: RILPIVIRINE HYDROCHLORIDE
     Indication: HIV INFECTION
     Route: 048
     Dates: start: 20140305, end: 20150106

REACTIONS (5)
  - Weight increased [None]
  - Back pain [None]
  - Dyspnoea [None]
  - Abdominal distension [None]
  - Chest discomfort [None]

NARRATIVE: CASE EVENT DATE: 20140901
